FAERS Safety Report 7518324-8 (Version None)
Quarter: 2011Q2

REPORT INFORMATION
  Report Type: 
  Country: None (occurrence: None)
  Receive Date: 20110602
  Receipt Date: 20100923
  Transmission Date: 20111010
  Serious: Yes (Hospitalization, Other)
  Sender: FDA-Public Use
  Company Number: US-BAYER-2010-005916

PATIENT
  Age: 55 Year
  Sex: Male
  Weight: 85.714 kg

DRUGS (27)
  1. RED BLOOD CELLS [Concomitant]
     Dosage: 2 UNITS
     Route: 042
  2. PROTAMINE SULFATE [Concomitant]
     Dosage: UNK
     Dates: start: 20041127
  3. GENTAMYCIN SULFATE [Concomitant]
     Dosage: 1000CC
     Route: 042
  4. TRASYLOL [Suspect]
     Indication: HEART TRANSPLANT
     Dosage: ONE BOTTLE OVER 30 MINUTES
     Route: 042
     Dates: start: 20041127, end: 20041127
  5. TRASYLOL [Suspect]
     Indication: CARDIAC PACEMAKER REMOVAL
  6. TRASYLOL [Suspect]
  7. ZOLOFT [Concomitant]
  8. HEPARIN [Concomitant]
     Dosage: UNK
     Dates: start: 20041127
  9. METOPROLOL TARTRATE [Concomitant]
  10. TRASYLOL [Suspect]
     Indication: IMPLANTABLE DEFIBRILLATOR INSERTION
  11. NORVASC [Concomitant]
  12. ANCEF [Concomitant]
     Dosage: 1 G, UNK
     Route: 042
  13. FRESH FROZEN PLASMA [Concomitant]
     Dosage: 4 UNITS
  14. PLATELETS [Concomitant]
     Dosage: 1 UNIT
  15. ASPIRIN [Concomitant]
  16. TACROLIMUS [Concomitant]
     Indication: IMMUNOSUPPRESSION
  17. PLATELETS [Concomitant]
     Dosage: 4 UNIT
     Route: 042
     Dates: start: 20041127
  18. POTASSIUM CHLORIDE [Concomitant]
  19. HEPARIN [Concomitant]
     Dosage: 25000UNITS
     Route: 042
     Dates: start: 20041222
  20. NOREPINEPHRINE BITARTRATE [Concomitant]
     Dosage: UNK
     Dates: start: 20041127
  21. VANCOMYCIN [Concomitant]
     Dosage: 1 G, UNK
     Route: 042
  22. FRESH FROZEN PLASMA [Concomitant]
     Dosage: 12UNITS
     Route: 042
     Dates: start: 20041127
  23. AMIODARONE HCL [Concomitant]
  24. LEVOPHED [Concomitant]
     Dosage: UNK
     Dates: start: 20041127
  25. TRASYLOL [Suspect]
     Indication: VENTRICULAR ASSIST DEVICE INSERTION
     Dosage: 50CC
     Route: 042
  26. RED BLOOD CELLS [Concomitant]
     Dosage: 1 UNIT
  27. VASOPRESSIN [Concomitant]
     Dosage: UNK
     Dates: start: 20041127

REACTIONS (11)
  - RENAL FAILURE [None]
  - PAIN [None]
  - EMOTIONAL DISORDER [None]
  - STRESS [None]
  - UNEVALUABLE EVENT [None]
  - INJURY [None]
  - RENAL FAILURE ACUTE [None]
  - ANXIETY [None]
  - FEAR [None]
  - RENAL IMPAIRMENT [None]
  - RENAL INJURY [None]
